FAERS Safety Report 7684747-X (Version None)
Quarter: 2011Q3

REPORT INFORMATION
  Report Type: 
  Country: None (occurrence: None)
  Receive Date: 20110810
  Receipt Date: 20110725
  Transmission Date: 20111222
  Serious: Yes (Other)
  Sender: FDA-Public Use
  Company Number: IPC201107-001936

PATIENT
  Age: 67 Year
  Sex: Female
  Weight: 77.1115 kg

DRUGS (6)
  1. PROPRANOLOL HYDROCHLORIDE [Suspect]
     Indication: HYPERTENSION
     Dosage: 80 MG PO QD, ORAL
     Route: 048
     Dates: start: 20101201
  2. HYDROCHLOROTHIAZIDE TAB [Suspect]
     Indication: HYPERTENSION
     Dosage: 25 MG PO QD, ORAL
     Route: 048
     Dates: start: 20110208
  3. ETHACRYNIC ACID [Concomitant]
  4. THYROID TAB [Concomitant]
  5. METOPROLOL SUCCINATE [Concomitant]
  6. THYROID TAB [Concomitant]

REACTIONS (4)
  - BLOOD PRESSURE INCREASED [None]
  - TEMPORAL ARTERITIS [None]
  - VASOSPASM [None]
  - DRUG INEFFECTIVE [None]
